FAERS Safety Report 5848776-0 (Version None)
Quarter: 2008Q3

REPORT INFORMATION
  Report Type: 
  Country: None (occurrence: None)
  Receive Date: 20080818
  Receipt Date: 20080813
  Transmission Date: 20090109
  Serious: No
  Sender: FDA-Public Use
  Company Number: US-BOEHRINGER INGELHEIM GMBH, GERMANY-2008-BP-09529BP

PATIENT
  Sex: Female

DRUGS (6)
  1. SPIRIVA [Suspect]
     Indication: ASTHMA
     Route: 055
     Dates: start: 20050101, end: 20080601
  2. CYMBALTA [Concomitant]
     Route: 048
  3. NYSTATIN [Concomitant]
  4. ZETIA [Concomitant]
  5. BENICAR [Concomitant]
     Route: 048
  6. MOBIC [Concomitant]

REACTIONS (1)
  - DRUG INEFFECTIVE [None]
